FAERS Safety Report 24816948 (Version 1)
Quarter: 2025Q1

REPORT INFORMATION
  Report Type: Report from Study
  Country: IE (occurrence: IE)
  Receive Date: 20250108
  Receipt Date: 20250108
  Transmission Date: 20250408
  Serious: Yes (Death)
  Sender: ABBVIE
  Company Number: IE-ABBVIE-6073777

PATIENT
  Age: 78 Year
  Sex: Female

DRUGS (1)
  1. HUMIRA [Suspect]
     Active Substance: ADALIMUMAB
     Indication: Rheumatoid arthritis
     Dosage: FORM STRENGTH: 40 MG
     Route: 058

REACTIONS (1)
  - Death [Fatal]
